FAERS Safety Report 5676493-9 (Version None)
Quarter: 2008Q2

REPORT INFORMATION
  Report Type: 
  Country: None (occurrence: None)
  Receive Date: 20080313
  Receipt Date: 20070410
  Transmission Date: 20081010
  Serious: Yes (Other)
  Sender: FDA-Public Use
  Company Number: 35907

PATIENT
  Age: 88 Year
  Sex: Female
  Weight: 72 kg

DRUGS (2)
  1. DOXYCYCLINE [Suspect]
     Indication: WOUND
     Dosage: 100 MG/IV
     Route: 042
     Dates: start: 20070409
  2. CLINIMIX (INTRAVENOUS NUTRITIONAL SUPPLEMENT) [Concomitant]

REACTIONS (1)
  - EXTRAVASATION [None]
